FAERS Safety Report 5167016-1 (Version None)
Quarter: 2006Q4

REPORT INFORMATION
  Report Type: 
  Country: None (occurrence: None)
  Receive Date: 20061207
  Receipt Date: 20061201
  Transmission Date: 20070319
  Serious: Yes (Death)
  Sender: FDA-Public Use
  Company Number: 2006GB02199

PATIENT
  Sex: Female
  Weight: 210 kg

DRUGS (5)
  1. SEROQUEL [Suspect]
     Indication: DEPRESSION
     Route: 048
  2. ACETAMINOPHEN [Suspect]
  3. CANNABIS [Suspect]
  4. ETHANOL [Suspect]
  5. PAROXETINE HCL [Suspect]
     Indication: DEPRESSION

REACTIONS (2)
  - MULTIPLE DRUG OVERDOSE [None]
  - OVERDOSE [None]
